FAERS Safety Report 16704244 (Version 1)
Quarter: 2019Q3

REPORT INFORMATION
  Report Type: Spontaneous
  Country: US (occurrence: US)
  Receive Date: 20190814
  Receipt Date: 20190814
  Transmission Date: 20191004
  Serious: Yes (Hospitalization)
  Sender: FDA-Public Use
  Company Number: US-TEVA-2019-US-1090926

PATIENT
  Sex: Male

DRUGS (2)
  1. CARTIA XT [Interacting]
     Active Substance: DILTIAZEM HYDROCHLORIDE
     Route: 065
  2. CARTIA XT [Suspect]
     Active Substance: DILTIAZEM HYDROCHLORIDE
     Indication: BLOOD PRESSURE ABNORMAL
     Route: 065

REACTIONS (4)
  - Incorrect dose administered [Unknown]
  - Hospitalisation [Unknown]
  - Heart rate irregular [Unknown]
  - Wrong technique in product usage process [Unknown]
